FAERS Safety Report 20280361 (Version 1)
Quarter: 2022Q1

REPORT INFORMATION
  Report Type: Report from Study
  Country: US (occurrence: US)
  Receive Date: 20220103
  Receipt Date: 20220103
  Transmission Date: 20220423
  Serious: Yes (Other)
  Sender: FDA-Public Use
  Company Number: US-BAYER-2022A000020

PATIENT
  Age: 10 Year
  Sex: Male

DRUGS (3)
  1. ASPIRIN [Interacting]
     Active Substance: ASPIRIN
     Indication: Anticoagulant therapy
  2. DIPYRIDAMOLE [Interacting]
     Active Substance: DIPYRIDAMOLE
  3. WARFARIN [Interacting]
     Active Substance: WARFARIN

REACTIONS (4)
  - Haemorrhage intracranial [None]
  - Labelled drug-drug interaction medication error [None]
  - Off label use [None]
  - Product use issue [None]
